FAERS Safety Report 9055402 (Version 4)
Quarter: 2014Q4

REPORT INFORMATION
  Report Type: Spontaneous
  Country: US (occurrence: US)
  Receive Date: 20130206
  Receipt Date: 20141121
  Transmission Date: 20150529
  Serious: Yes (Death, Other)
  Sender: FDA-Public Use
  Company Number: US-BAYER-2013-010701

PATIENT
  Age: 50 Year
  Sex: Female
  Weight: 70 kg

DRUGS (13)
  1. TRETINOIN. [Concomitant]
     Active Substance: TRETINOIN
     Dosage: 0.05 %, UNK
  2. ELAVIL [Concomitant]
     Active Substance: AMITRIPTYLINE HYDROCHLORIDE
  3. AMINO ACID [Concomitant]
     Dosage: 1000 [TIMES] 2
  4. AMITRIPTYLINE [Concomitant]
     Active Substance: AMITRIPTYLINE
     Dosage: 75 MG, UNK
  5. REMERON [Concomitant]
     Active Substance: MIRTAZAPINE
     Dosage: 15 MG, UNK
  6. BUSPIRONE [Concomitant]
     Active Substance: BUSPIRONE HYDROCHLORIDE
     Dosage: 15 MG, UNK
  7. YASMIN [Suspect]
     Active Substance: DROSPIRENONE\ETHINYL ESTRADIOL
     Dosage: UNK
     Dates: start: 20050504, end: 20050707
  8. ATENOLOL. [Concomitant]
     Active Substance: ATENOLOL
     Indication: VENTRICULAR EXTRASYSTOLES
     Dosage: 50 MG, UNK
  9. KLONOPIN [Concomitant]
     Active Substance: CLONAZEPAM
     Dosage: 1 MG; 0.5 MG TABLETS DISPENSED
  10. LITHIUM CARBONATE. [Concomitant]
     Active Substance: LITHIUM CARBONATE
     Dosage: 300 MG, UNK
  11. RETIN-A [Concomitant]
     Active Substance: TRETINOIN
  12. LEVOXYL [Concomitant]
     Active Substance: LEVOTHYROXINE SODIUM
     Indication: THYROID DISORDER
     Dosage: 112 MCG, UNK
  13. TAURINE [Concomitant]
     Active Substance: TAURINE
     Dosage: 500 MG (2), UNK

REACTIONS (8)
  - Pulmonary embolism [Fatal]
  - Injury [Fatal]
  - Depressed mood [None]
  - Pain [None]
  - Feeling abnormal [None]
  - Cholelithiasis [None]
  - Respiratory failure [Fatal]
  - Fatigue [Fatal]

NARRATIVE: CASE EVENT DATE: 2005
